FAERS Safety Report 21380780 (Version 6)
Quarter: 2023Q1

REPORT INFORMATION
  Report Type: Report from Study
  Country: FR (occurrence: FR)
  Receive Date: 20220927
  Receipt Date: 20230201
  Transmission Date: 20230417
  Serious: Yes (Hospitalization)
  Sender: FDA-Public Use
  Company Number: FR-SA-SAC20220923000350

PATIENT
  Age: 75 Year
  Sex: Female
  Weight: 49 kg

DRUGS (6)
  1. ISATUXIMAB [Suspect]
     Active Substance: ISATUXIMAB
     Indication: Primary amyloidosis
     Dosage: 480 MG
     Route: 042
     Dates: start: 20220912, end: 20220912
  2. ISATUXIMAB [Suspect]
     Active Substance: ISATUXIMAB
     Dosage: 480 MG
     Route: 042
     Dates: start: 20220905, end: 20220905
  3. POMALIDOMIDE [Suspect]
     Active Substance: POMALIDOMIDE
     Indication: Primary amyloidosis
     Dosage: 4 MG
     Route: 048
     Dates: start: 20220918, end: 20220918
  4. POMALIDOMIDE [Suspect]
     Active Substance: POMALIDOMIDE
     Dosage: 4 MG
     Route: 048
     Dates: start: 20220905, end: 20220905
  5. DEXAMETHASONE [Suspect]
     Active Substance: DEXAMETHASONE
     Indication: Primary amyloidosis
     Dosage: 10 MG
     Route: 048
     Dates: start: 20220919, end: 20220919
  6. DEXAMETHASONE [Suspect]
     Active Substance: DEXAMETHASONE
     Dosage: 10 MG
     Route: 048
     Dates: start: 20220905, end: 20220905

REACTIONS (2)
  - Atrial tachycardia [Recovered/Resolved]
  - Cardiac failure [Not Recovered/Not Resolved]

NARRATIVE: CASE EVENT DATE: 20220919
